FAERS Safety Report 18134967 (Version 1)
Quarter: 2020Q3

REPORT INFORMATION
  Report Type: Spontaneous
  Country: US (occurrence: US)
  Receive Date: 20200810
  Receipt Date: 20200810
  Transmission Date: 20201103
  Serious: No
  Sender: FDA-Public Use
  Company Number: None

PATIENT
  Age: 62 Year
  Sex: Male

DRUGS (1)
  1. SUTENT [Suspect]
     Active Substance: SUNITINIB MALATE
     Route: 048
     Dates: start: 202007, end: 202008

REACTIONS (3)
  - Hyperkeratosis [None]
  - White blood cell count decreased [None]
  - Tongue ulceration [None]

NARRATIVE: CASE EVENT DATE: 20200708
